FAERS Safety Report 5420868-X (Version None)
Quarter: 2007Q3

REPORT INFORMATION
  Report Type: 
  Country: None (occurrence: None)
  Receive Date: 20070817
  Receipt Date: 20070817
  Transmission Date: 20080115
  Serious: Yes (Hospitalization)
  Sender: FDA-Public Use
  Company Number: None

PATIENT
  Age: 85 Year
  Sex: Male

DRUGS (2)
  1. TRAMADOL HCL [Suspect]
     Indication: NEUROPATHY PERIPHERAL
     Dosage: 50MG BID PO
     Route: 048
     Dates: start: 20070613, end: 20070813
  2. TRAMADOL HCL [Suspect]
     Indication: PAIN
     Dosage: 50MG BID PO
     Route: 048
     Dates: start: 20070613, end: 20070813

REACTIONS (6)
  - CONFUSIONAL STATE [None]
  - HYPONATRAEMIA [None]
  - HYPOXIA [None]
  - NAUSEA [None]
  - VOMITING [None]
  - WEIGHT DECREASED [None]
